FAERS Safety Report 17085202 (Version 2)
Quarter: 2019Q4

REPORT INFORMATION
  Report Type: Spontaneous
  Country: US (occurrence: US)
  Receive Date: 20191127
  Receipt Date: 20191209
  Transmission Date: 20200122
  Serious: Yes (Hospitalization)
  Sender: FDA-Public Use
  Company Number: US-ROCHE-2479682

PATIENT
  Age: 84 Year
  Sex: Female

DRUGS (1)
  1. ESBRIET [Suspect]
     Active Substance: PIRFENIDONE
     Indication: IDIOPATHIC PULMONARY FIBROSIS
     Dosage: ONGOING : YES
     Route: 048
     Dates: start: 20190417

REACTIONS (1)
  - Hemiplegic migraine [Unknown]

NARRATIVE: CASE EVENT DATE: 20191107
